FAERS Safety Report 14900556 (Version 1)
Quarter: 2018Q2

REPORT INFORMATION
  Report Type: Spontaneous
  Country: US (occurrence: US)
  Receive Date: 20180516
  Receipt Date: 20180516
  Transmission Date: 20180711
  Serious: Yes (Other)
  Sender: FDA-Public Use
  Company Number: US-PFIZER INC-2018196792

PATIENT
  Age: 79 Year
  Sex: Male

DRUGS (2)
  1. DEPO-MEDROL [Suspect]
     Active Substance: METHYLPREDNISOLONE ACETATE
     Dosage: UNK
     Dates: start: 201802
  2. DEPO-MEDROL [Suspect]
     Active Substance: METHYLPREDNISOLONE ACETATE
     Indication: BACK PAIN
     Dosage: UNK
     Dates: start: 201705

REACTIONS (2)
  - Blood glucose increased [Unknown]
  - Vision blurred [Unknown]
